FAERS Safety Report 5859182-7 (Version None)
Quarter: 2008Q3

REPORT INFORMATION
  Report Type: 
  Country: None (occurrence: None)
  Receive Date: 20080825
  Receipt Date: 20080819
  Transmission Date: 20090109
  Serious: Yes (Hospitalization)
  Sender: FDA-Public Use
  Company Number: 2008SP016801

PATIENT
  Age: 60 Year
  Sex: Male

DRUGS (2)
  1. PEG-INTRON [Suspect]
     Indication: HEPATITIS C
     Dosage: 100 MCG QW SC
     Route: 058
     Dates: start: 20080220, end: 20080701
  2. REBETOL [Suspect]
     Indication: HEPATITIS C
     Dosage: 800 MG QD PO
     Route: 048
     Dates: start: 20080220, end: 20080701

REACTIONS (1)
  - SUBARACHNOID HAEMORRHAGE [None]
